FAERS Safety Report 19247913 (Version 1)
Quarter: 2021Q2

REPORT INFORMATION
  Report Type: Other
  Country: DE (occurrence: DE)
  Receive Date: 20210512
  Receipt Date: 20210512
  Transmission Date: 20210717
  Serious: Yes (Other)
  Sender: FDA-Public Use
  Company Number: DE-CHIESI-2020CHF05819

PATIENT
  Age: 18 Year
  Sex: Male
  Weight: 51 kg

DRUGS (14)
  1. FORMOTEROL [Concomitant]
     Active Substance: FORMOTEROL
     Indication: CYSTIC FIBROSIS
     Dosage: 24 MICROGRAM, QD
     Route: 055
     Dates: start: 20190731
  2. ACC 200 [Concomitant]
     Active Substance: ACETYLCYSTEINE
     Indication: CYSTIC FIBROSIS
     Dosage: 200 MILLIGRAM, QD
     Route: 048
     Dates: start: 20190731
  3. SYMKEVI [Suspect]
     Active Substance: IVACAFTOR\TEZACAFTOR
     Indication: CYSTIC FIBROSIS
     Dosage: 1 DOSAGE FORM, QD
     Route: 048
     Dates: start: 20200408
  4. SALBUTAMOL [Concomitant]
     Active Substance: ALBUTEROL
     Indication: CYSTIC FIBROSIS
     Dosage: 10 GTT DROPS, QD
     Route: 055
     Dates: start: 20190301
  5. ATROVENT LS [Concomitant]
     Indication: CYSTIC FIBROSIS
     Dosage: 30 DOSAGE FORM, QD
     Route: 055
     Dates: start: 20181011
  6. NATRIUMCHLORIDE [Concomitant]
     Active Substance: SODIUM CHLORIDE
     Indication: CYSTIC FIBROSIS
     Dosage: 5 MILLILITER, QD
     Route: 055
     Dates: start: 20190731
  7. PANCRELIPASE. [Concomitant]
     Active Substance: PANCRELIPASE
     Indication: PRODUCT USED FOR UNKNOWN INDICATION
     Dosage: UNK
  8. KREON [Concomitant]
     Active Substance: PANCRELIPASE
     Indication: CYSTIC FIBROSIS
     Dosage: UNK
     Route: 048
     Dates: start: 20190731
  9. UNSPECIFIED TOBRAMYCIN [Suspect]
     Active Substance: TOBRAMYCIN
     Indication: PSEUDOMONAS TEST POSITIVE
     Dosage: 600 MILLIGRAM, QD
     Route: 055
     Dates: start: 20200408, end: 20200506
  10. ADEK [Concomitant]
     Indication: CYSTIC FIBROSIS
     Dosage: 1 DOSAGE FORM, QD
     Route: 048
     Dates: start: 20181011
  11. OMEPRAZOL [OMEPRAZOLE] [Concomitant]
     Active Substance: OMEPRAZOLE
     Indication: CYSTIC FIBROSIS
     Dosage: 20 MILLIGRAM
     Route: 048
     Dates: start: 20190226
  12. MOVICOL PLAIN [Concomitant]
     Active Substance: POLYETHYLENE GLYCOL 3350\POTASSIUM CHLORIDE\SODIUM BICARBONATE\SODIUM CHLORIDE
     Indication: CYSTIC FIBROSIS
     Dosage: 1 DOSAGE FORM, QD
     Route: 048
     Dates: start: 20190731
  13. PULMOZYME [Concomitant]
     Active Substance: DORNASE ALFA
     Indication: CYSTIC FIBROSIS
     Dosage: 2500 INTERNATIONAL UNIT, QD
     Route: 055
     Dates: start: 20190731
  14. KALYDECO [Suspect]
     Active Substance: IVACAFTOR
     Indication: CYSTIC FIBROSIS
     Dosage: 150 MILLIGRAM, QD
     Route: 048
     Dates: start: 20200408

REACTIONS (2)
  - Increased bronchial secretion [Recovered/Resolved]
  - Throat tightness [Recovered/Resolved]

NARRATIVE: CASE EVENT DATE: 20200408
